FAERS Safety Report 12109378 (Version 1)
Quarter: 2016Q1

REPORT INFORMATION
  Report Type: Spontaneous
  Country: US (occurrence: None)
  Receive Date: 20160222
  Receipt Date: 20160222
  Transmission Date: 20160526
  Serious: No
  Sender: FDA-Public Use
  Company Number: None

PATIENT
  Age: 71 Year
  Sex: Male

DRUGS (13)
  1. ALBUTEROL. [Concomitant]
     Active Substance: ALBUTEROL
  2. FAMOTIDINE. [Concomitant]
     Active Substance: FAMOTIDINE
  3. DOCUSATE [Concomitant]
     Active Substance: DOCUSATE
  4. MORPHINE [Concomitant]
     Active Substance: MORPHINE
  5. SIMVASTATIN. [Concomitant]
     Active Substance: SIMVASTATIN
  6. INSULIN ASPART [Suspect]
     Active Substance: INSULIN ASPART
     Indication: HYPERGLYCAEMIA
     Route: 058
     Dates: start: 20150919
  7. PREDNISONE. [Concomitant]
     Active Substance: PREDNISONE
  8. SENNA [Concomitant]
     Active Substance: SENNA LEAF\SENNOSIDES\SENNOSIDES A AND B
  9. HEPARIN [Concomitant]
     Active Substance: HEPARIN SODIUM
  10. SALMETEROL [Concomitant]
     Active Substance: SALMETEROL
  11. FLUTICASONE [Concomitant]
     Active Substance: FLUTICASONE\FLUTICASONE PROPIONATE
  12. POLYETHYLENE GLYCOL 3350. [Concomitant]
     Active Substance: POLYETHYLENE GLYCOL 3350
  13. TIOTROPIUM [Concomitant]
     Active Substance: TIOTROPIUM

REACTIONS (1)
  - Hypoglycaemia [None]

NARRATIVE: CASE EVENT DATE: 20150924
